FAERS Safety Report 20373972 (Version 1)
Quarter: 2022Q1

REPORT INFORMATION
  Report Type: Spontaneous
  Country: US (occurrence: None)
  Receive Date: 20220124
  Receipt Date: 20220124
  Transmission Date: 20220423
  Serious: Yes (Hospitalization)
  Sender: FDA-Public Use
  Company Number: None

PATIENT
  Sex: Female

DRUGS (2)
  1. MEKINIST [Suspect]
     Active Substance: TRAMETINIB DIMETHYL SULFOXIDE
     Indication: Skin cancer
     Dosage: FREQUENCY : DAILY;?
     Route: 048
     Dates: start: 20220114
  2. TAFINLAR [Concomitant]
     Active Substance: DABRAFENIB MESYLATE

REACTIONS (6)
  - Fatigue [None]
  - Vomiting [None]
  - Alopecia [None]
  - Therapy interrupted [None]
  - Mobility decreased [None]
  - Speech disorder [None]
